FAERS Safety Report 26114125 (Version 1)
Quarter: 2025Q4

REPORT INFORMATION
  Report Type: Spontaneous
  Country: US (occurrence: US)
  Receive Date: 20251202
  Receipt Date: 20251202
  Transmission Date: 20260117
  Serious: Yes (Hospitalization)
  Sender: AMGEN
  Company Number: US-AMGEN-USASP2025233869

PATIENT
  Age: 61 Year
  Sex: Male

DRUGS (3)
  1. PREDNISONE [Suspect]
     Active Substance: PREDNISONE
     Indication: Secondary adrenocortical insufficiency
     Dosage: 5 MILLIGRAM, QD
     Route: 065
  2. LEVOTHYROXINE [Concomitant]
     Active Substance: LEVOTHYROXINE
     Indication: Central hypothyroidism
     Dosage: 125 MICROGRAM, QD
     Route: 065
  3. TESTOSTERONE CYPIONATE [Concomitant]
     Active Substance: TESTOSTERONE CYPIONATE
     Indication: Hypogonadism

REACTIONS (4)
  - Pituitary tumour benign [Recovering/Resolving]
  - Immunoglobulin G4 related disease [Recovering/Resolving]
  - Hypophysitis [Unknown]
  - Off label use [Unknown]
